FAERS Safety Report 15459748 (Version 1)
Quarter: 2018Q4

REPORT INFORMATION
  Report Type: Spontaneous
  Country: FI (occurrence: FI)
  Receive Date: 20181003
  Receipt Date: 20181003
  Transmission Date: 20190204
  Serious: Yes (Disabling)
  Sender: FDA-Public Use
  Company Number: FI-SA-2018SA246037

PATIENT
  Age: 47 Year
  Sex: Female

DRUGS (5)
  1. AUBAGIO [Suspect]
     Active Substance: TERIFLUNOMIDE
     Dosage: UNK
     Dates: start: 201605
  2. CORTISONE [Suspect]
     Active Substance: CORTISONE\HYDROCORTISONE
     Dosage: UNK
     Route: 042
     Dates: start: 20180812, end: 20180814
  3. ATORVASTATIN [Concomitant]
     Active Substance: ATORVASTATIN
     Dosage: UNK UNK, UNK
     Route: 065
  4. CIPRALEX [ESCITALOPRAM OXALATE] [Concomitant]
     Dosage: UNK UNK, UNK
     Route: 065
  5. THYROXIN [Concomitant]
     Active Substance: LEVOTHYROXINE
     Dosage: UNK UNK, UNK
     Route: 065

REACTIONS (5)
  - Herpes zoster [Recovered/Resolved with Sequelae]
  - Pain of skin [Recovered/Resolved with Sequelae]
  - Dermatitis [Recovering/Resolving]
  - Blister [Recovering/Resolving]
  - Fatigue [Unknown]

NARRATIVE: CASE EVENT DATE: 20180822
